FAERS Safety Report 9649293 (Version 1)
Quarter: 2013Q4

REPORT INFORMATION
  Report Type: Spontaneous
  Country: US (occurrence: None)
  Receive Date: 20131018
  Receipt Date: 20131018
  Transmission Date: 20140711
  Serious: No
  Sender: FDA-Public Use
  Company Number: AEGR000101

PATIENT
  Age: 56 Year
  Sex: Male
  Weight: 67.59 kg

DRUGS (11)
  1. JUXTAPID [Suspect]
     Indication: TYPE IIA HYPERLIPIDAEMIA
     Route: 048
     Dates: start: 20130325, end: 20130515
  2. CRESTOR (ROSVASTATIN CALCIUM) [Concomitant]
  3. NIASPAN (NICOTINIC ACID) [Concomitant]
  4. METOPROLOL (METOPROLOL SUCCINATE) [Concomitant]
  5. RANEXA (RANOLAZINE) [Concomitant]
  6. METFORMIN (METFORMIN HYDROCHLORIDE) [Concomitant]
  7. DEXILANT (DEXLANSOPRAZOLE) [Concomitant]
  8. PLAVIX (CLOPIDOGREL BISULFATE) [Concomitant]
  9. BYSTOLIC (NEBIVOLOL HYDROCHLORIDE) [Concomitant]
  10. VITAMIN D3 (VITAMIN D3) [Concomitant]
  11. ASPIRIN (ACETYLSALIYCLIC ACID) [Concomitant]

REACTIONS (2)
  - Nausea [None]
  - Vomiting [None]
